FAERS Safety Report 9786325 (Version 4)
Quarter: 2014Q3

REPORT INFORMATION
  Report Type: Spontaneous
  Country: CN (occurrence: None)
  Receive Date: 20131224
  Receipt Date: 20140925
  Transmission Date: 20150326
  Serious: Yes (Other)
  Sender: FDA-Public Use
  Company Number: 2013P1022159

PATIENT
  Age: 36 Year
  Sex: Female

DRUGS (3)
  1. CHINESE MEDICATION LIU WEI DI HUANG [Suspect]
     Active Substance: UNSPECIFIED INGREDIENT
     Indication: SLEEP DISORDER
     Dosage: 16 CAPSULES
     Route: 048
     Dates: start: 20131102, end: 20131127
  2. CHINESE MEDICATION ZHI BAI DI HUANG [Suspect]
     Active Substance: UNSPECIFIED INGREDIENT
     Indication: SLEEP DISORDER
     Dosage: 60 CAPSULES
     Route: 048
     Dates: start: 20131102, end: 20131127
  3. ZENTEL [Suspect]
     Active Substance: ALBENDAZOLE
     Indication: HELMINTHIC INFECTION
     Dosage: 2 TABLETS
     Route: 048
     Dates: start: 20131127, end: 20131127

REACTIONS (6)
  - Vaginal haemorrhage [None]
  - Helminthic infection [None]
  - Premature delivery [None]
  - Pregnancy [None]
  - Abdominal distension [None]
  - Exposure during pregnancy [None]

NARRATIVE: CASE EVENT DATE: 20131127
